FAERS Safety Report 13154131 (Version 1)
Quarter: 2017Q1

REPORT INFORMATION
  Report Type: Spontaneous
  Country: US (occurrence: US)
  Receive Date: 20170125
  Receipt Date: 20170125
  Transmission Date: 20170428
  Serious: No
  Sender: FDA-Public Use
  Company Number: None

PATIENT
  Age: 33 Year
  Sex: Female

DRUGS (13)
  1. DISOPYRAMIDE [Concomitant]
     Active Substance: DISOPYRAMIDE
  2. XOPENEX HFA AER [Concomitant]
  3. TRAMADOL HCL [Concomitant]
     Active Substance: TRAMADOL HYDROCHLORIDE
  4. COZAAR [Concomitant]
     Active Substance: LOSARTAN POTASSIUM
  5. PREDNISONE. [Concomitant]
     Active Substance: PREDNISONE
  6. ATENOLOL. [Concomitant]
     Active Substance: ATENOLOL
  7. PROCRIT [Suspect]
     Active Substance: ERYTHROPOIETIN
     Indication: ANAEMIA
     Dosage: 4000 UNITS (1 VIAL) TIW UNDER THE SKIN
     Route: 058
     Dates: start: 20090114
  8. MICROGESTIN [Concomitant]
     Active Substance: ETHINYL ESTRADIOL\NORETHINDRONE ACETATE
  9. SINGULAIR [Concomitant]
     Active Substance: MONTELUKAST SODIUM
  10. NUVIGIL [Concomitant]
     Active Substance: ARMODAFINIL
  11. ZYFLO CR [Concomitant]
     Active Substance: ZILEUTON
  12. AMITIZA [Concomitant]
     Active Substance: LUBIPROSTONE
  13. BUDEPRION XL [Concomitant]
     Active Substance: BUPROPION HYDROCHLORIDE

REACTIONS (2)
  - Bronchitis [None]
  - Pneumonia [None]
